FAERS Safety Report 12487866 (Version 3)
Quarter: 2016Q3

REPORT INFORMATION
  Report Type: Spontaneous
  Country: US (occurrence: US)
  Receive Date: 20160622
  Receipt Date: 20160728
  Transmission Date: 20161109
  Serious: Yes (Other)
  Sender: FDA-Public Use
  Company Number: US-AUROBINDO-AUR-APL-2016-08077

PATIENT
  Age: 36 Year
  Sex: Male

DRUGS (8)
  1. CLONIDINE. [Suspect]
     Active Substance: CLONIDINE
     Indication: SUPRAPUBIC PAIN
  2. BUPIVACAINE HYDROCHLORIDE. [Suspect]
     Active Substance: BUPIVACAINE HYDROCHLORIDE
     Indication: SUPRAPUBIC PAIN
  3. MORPHINE [Concomitant]
     Active Substance: MORPHINE
     Indication: SUPRAPUBIC PAIN
     Dosage: UNK
     Route: 037
  4. ZICONOTIDE [Suspect]
     Active Substance: ZICONOTIDE
     Indication: SUPRAPUBIC PAIN
     Dosage: UNK
     Route: 037
  5. CLONIDINE. [Suspect]
     Active Substance: CLONIDINE
     Indication: TESTICULAR PAIN
     Dosage: UNK
     Route: 037
  6. MORPHINE [Concomitant]
     Active Substance: MORPHINE
     Indication: TESTICULAR PAIN
     Dosage: UNK
     Route: 037
  7. BUPIVACAINE HYDROCHLORIDE. [Suspect]
     Active Substance: BUPIVACAINE HYDROCHLORIDE
     Indication: TESTICULAR PAIN
     Dosage: UNK
     Route: 037
  8. ZICONOTIDE [Suspect]
     Active Substance: ZICONOTIDE
     Indication: TESTICULAR PAIN

REACTIONS (12)
  - Anal incontinence [Recovered/Resolved]
  - Hypoaesthesia [Unknown]
  - Urinary incontinence [Recovered/Resolved]
  - Asthenia [Recovered/Resolved]
  - Spinal cord compression [Unknown]
  - Balance disorder [Unknown]
  - Muscle spasms [Unknown]
  - Cauda equina syndrome [Unknown]
  - Fibrosis [Unknown]
  - Fall [Unknown]
  - Gait disturbance [Unknown]
  - Back pain [Unknown]
